FAERS Safety Report 16488190 (Version 2)
Quarter: 2019Q3

REPORT INFORMATION
  Report Type: Report from Study
  Country: CR (occurrence: CR)
  Receive Date: 20190627
  Receipt Date: 20190719
  Transmission Date: 20191004
  Serious: Yes (Other)
  Sender: FDA-Public Use
  Company Number: PHHY2019CR120096

PATIENT
  Sex: Female
  Weight: 73 kg

DRUGS (2)
  1. PRIMABELA [Suspect]
     Active Substance: DROSPIRENONE\ETHINYL ESTRADIOL
     Indication: ORAL CONTRACEPTION
     Route: 048
  2. TASIGNA [Suspect]
     Active Substance: NILOTINIB
     Indication: CHRONIC MYELOID LEUKAEMIA
     Dosage: 200 MG, BID (STARTED 2 AND HALF YEARS AGO)
     Route: 065
     Dates: start: 201611

REACTIONS (10)
  - Menstruation irregular [Unknown]
  - Normal newborn [Unknown]
  - Weight increased [Unknown]
  - Polymerase chain reaction positive [Unknown]
  - Diarrhoea [Unknown]
  - White blood cell count increased [Not Recovered/Not Resolved]
  - Pregnancy on oral contraceptive [Unknown]
  - Abdominal pain upper [Unknown]
  - Maternal exposure during pregnancy [Unknown]
  - Therapeutic response decreased [Unknown]
